FAERS Safety Report 9214927 (Version 1)
Quarter: 2013Q2

REPORT INFORMATION
  Report Type: Spontaneous
  Country: FR (occurrence: FR)
  Receive Date: 20130405
  Receipt Date: 20130405
  Transmission Date: 20140414
  Serious: Yes (Hospitalization)
  Sender: FDA-Public Use
  Company Number: FR-GLAXOSMITHKLINE-B0878956A

PATIENT
  Age: 86 Year
  Sex: Female

DRUGS (8)
  1. ARIXTRA [Suspect]
     Indication: THROMBOPHLEBITIS
     Dosage: 7.5MG PER DAY
     Route: 058
     Dates: start: 20130123, end: 20130213
  2. PLAVIX [Suspect]
     Indication: THROMBOSIS PROPHYLAXIS
     Dosage: 75MG PER DAY
     Route: 048
     Dates: end: 20130213
  3. PRAVASTATINE [Concomitant]
     Indication: DYSLIPIDAEMIA
     Dosage: 1UNIT PER DAY
     Route: 048
  4. IKOREL [Concomitant]
     Indication: HYPERTENSION
     Route: 048
  5. APROVEL [Concomitant]
     Indication: HYPERTENSION
     Route: 048
  6. AMLOR [Concomitant]
     Indication: HYPERTENSION
     Route: 048
  7. EUPRESSYL [Concomitant]
     Indication: HYPERTENSION
     Route: 048
  8. LEVEMIR [Concomitant]
     Indication: TYPE 1 DIABETES MELLITUS
     Route: 058

REACTIONS (3)
  - Haematoma [Recovered/Resolved]
  - Drug interaction [Unknown]
  - Incorrect drug administration duration [Unknown]
